FAERS Safety Report 19941834 (Version 1)
Quarter: 2021Q4

REPORT INFORMATION
  Report Type: Spontaneous
  Country: US (occurrence: US)
  Receive Date: 20211012
  Receipt Date: 20211012
  Transmission Date: 20220303
  Serious: Yes (Death, Hospitalization, Other)
  Sender: FDA-Public Use
  Company Number: US-AMGEN-USASP2021154697

PATIENT

DRUGS (9)
  1. FILGRASTIM [Suspect]
     Active Substance: FILGRASTIM
     Indication: Prophylaxis
     Dosage: 5 MICROGRAM/KILOGRAM
     Route: 065
  2. DOXORUBICIN [Concomitant]
     Active Substance: DOXORUBICIN
  3. GEMCITABINE [Concomitant]
     Active Substance: GEMCITABINE
     Dosage: 900 MILLIGRAM/SQ. METER
     Route: 065
  4. GEMCITABINE [Concomitant]
     Active Substance: GEMCITABINE
     Dosage: 1000 MILLIGRAM/SQ. METER
     Route: 065
  5. GEMCITABINE [Concomitant]
     Active Substance: GEMCITABINE
     Dosage: 1200 MILLIGRAM/SQ. METER
  6. DOCETAXEL [Concomitant]
     Active Substance: DOCETAXEL
     Dosage: 50 MILLIGRAM/SQ. METER
     Route: 065
  7. DOCETAXEL [Concomitant]
     Active Substance: DOCETAXEL
     Dosage: 60 MILLIGRAM/SQ. METER
     Route: 065
  8. DOCETAXEL [Concomitant]
     Active Substance: DOCETAXEL
     Dosage: 75 MILLIGRAM/SQ. METER
     Route: 065
  9. DOCETAXEL [Concomitant]
     Active Substance: DOCETAXEL
     Dosage: 100 MILLIGRAM/SQ. METER
     Route: 065

REACTIONS (9)
  - Death [Fatal]
  - Febrile neutropenia [Unknown]
  - Thrombocytopenia [Unknown]
  - Disease progression [Unknown]
  - Neuropathy peripheral [Unknown]
  - Drug ineffective [Unknown]
  - Gene mutation [Unknown]
  - Anaemia [Unknown]
  - Diarrhoea [Unknown]
